FAERS Safety Report 5031648-1 (Version None)
Quarter: 2006Q2

REPORT INFORMATION
  Report Type: 
  Country: None (occurrence: None)
  Receive Date: 20060616
  Receipt Date: 20060607
  Transmission Date: 20061013
  Serious: Yes (Hospitalization, Other)
  Sender: FDA-Public Use
  Company Number: 233319K06USA

PATIENT
  Age: 52 Year
  Sex: Female

DRUGS (2)
  1. REBIF [Suspect]
     Indication: MULTIPLE SCLEROSIS
     Dosage: 44 MCG, 3 IN 1 WEEKS, SUBCUTANEOUS
     Route: 058
     Dates: start: 20040607, end: 20060301
  2. LORTAB [Concomitant]

REACTIONS (8)
  - ABSCESS LIMB [None]
  - INFLAMMATION [None]
  - POST PROCEDURAL COMPLICATION [None]
  - PURULENCE [None]
  - RED BLOOD CELL COUNT DECREASED [None]
  - SKIN NECROSIS [None]
  - SKIN ULCER [None]
  - SLEEP DISORDER [None]
